FAERS Safety Report 9321944 (Version 2)
Quarter: 2013Q2

REPORT INFORMATION
  Report Type: Report from Study
  Country: US (occurrence: US)
  Receive Date: 20130531
  Receipt Date: 20130627
  Transmission Date: 20140414
  Serious: Yes (Hospitalization)
  Sender: FDA-Public Use
  Company Number: US-PFIZER INC-2013159761

PATIENT
  Age: 73 Year
  Sex: Male
  Weight: 78.46 kg

DRUGS (13)
  1. FLUOROURACIL [Suspect]
     Indication: NEOPLASM MALIGNANT
     Dosage: 400 MG/M2, ON DAY 1 OF EACH CYCLE
     Route: 040
     Dates: start: 20130218, end: 20130430
  2. FLUOROURACIL [Suspect]
     Dosage: 2400 MG/M2, CONTINUOUS INFUSION OVER 46-48 HOURS
     Route: 041
     Dates: end: 20130430
  3. IRINOTECAN HCL [Suspect]
     Indication: NEOPLASM MALIGNANT
     Dosage: 180 MG/M2, ON DAY 1 OF EACH CYCLE
     Route: 042
     Dates: start: 20130218, end: 20130430
  4. IRINOTECAN HCL [Suspect]
     Dosage: 150 MG/M2, UNK
  5. RAMUCIRUMAB [Suspect]
     Indication: NEOPLASM MALIGNANT
     Dosage: 8 MG/KG, ON DAY 1 OF EACH CYCLE BEGINNING WITH CYCLE 2
     Route: 042
     Dates: start: 20130311, end: 20130504
  6. FOLINIC ACID [Suspect]
     Indication: NEOPLASM MALIGNANT
     Dosage: 400 MG/M2, ON DAY 1 OF EACH CYCLE
     Dates: start: 20130218, end: 20130430
  7. GAS-X [Concomitant]
     Dosage: UNK
     Dates: start: 20110101
  8. IMODIUM [Concomitant]
     Dosage: UNK
     Dates: start: 20130412
  9. LOMOTIL [Concomitant]
     Dosage: UNK
     Dates: start: 20130405
  10. PRAVASTATIN [Concomitant]
     Dosage: UNK
     Dates: start: 20120901
  11. RAMIPRIL [Concomitant]
     Dosage: UNK
     Dates: start: 19910101
  12. ASPIRIN [Concomitant]
     Dosage: UNK
     Dates: start: 19910101
  13. GLYBURIDE [Concomitant]
     Dosage: UNK
     Dates: start: 20110901

REACTIONS (2)
  - Diarrhoea [Recovered/Resolved]
  - Dehydration [Recovered/Resolved]
